FAERS Safety Report 5565778-2 (Version None)
Quarter: 2007Q4

REPORT INFORMATION
  Report Type: 
  Country: None (occurrence: None)
  Receive Date: 20071213
  Receipt Date: 20071130
  Transmission Date: 20080405
  Serious: Yes (Hospitalization)
  Sender: FDA-Public Use
  Company Number: APP200700339

PATIENT
  Age: 91 Year
  Sex: Female

DRUGS (5)
  1. GENTAMICIN [Suspect]
     Indication: PSEUDOMONAS INFECTION
     Dates: start: 20071019, end: 20071109
  2. AVALIDE (KARVEA HCT) [Concomitant]
  3. SYNTHROID [Concomitant]
  4. LORATADINE [Concomitant]
  5. ASPIRIN [Concomitant]

REACTIONS (2)
  - DIZZINESS [None]
  - LOSS OF CONSCIOUSNESS [None]
